FAERS Safety Report 15595555 (Version 1)
Quarter: 2018Q4

REPORT INFORMATION
  Report Type: Report from Study
  Country: None (occurrence: US)
  Receive Date: 20181107
  Receipt Date: 20181107
  Transmission Date: 20190205
  Serious: Yes (Hospitalization, Other)
  Sender: FDA-Public Use
  Company Number: US-ABBVIE-18K-163-2544009-00

PATIENT
  Age: 74 Year
  Sex: Female

DRUGS (3)
  1. VENCLEXTA [Suspect]
     Active Substance: VENETOCLAX
     Dosage: RAMP UP DOSING
     Route: 048
     Dates: start: 20180715, end: 2018
  2. VENCLEXTA [Suspect]
     Active Substance: VENETOCLAX
     Dosage: DECREASED DOSE
     Route: 048
     Dates: start: 2018, end: 20181009
  3. VENCLEXTA [Suspect]
     Active Substance: VENETOCLAX
     Indication: CHRONIC LYMPHOCYTIC LEUKAEMIA
     Route: 048
     Dates: start: 20180625, end: 2018

REACTIONS (8)
  - Fall [Recovered/Resolved]
  - Haematocrit decreased [Unknown]
  - Pulmonary oedema [Recovered/Resolved]
  - Loss of consciousness [Unknown]
  - Pulmonary oedema [Unknown]
  - Haemoglobin decreased [Recovered/Resolved]
  - Renal disorder [Unknown]
  - White blood cell count decreased [Unknown]

NARRATIVE: CASE EVENT DATE: 2018
